FAERS Safety Report 25400763 (Version 1)
Quarter: 2025Q2

REPORT INFORMATION
  Report Type: Report from Study
  Country: US (occurrence: US)
  Receive Date: 20250605
  Receipt Date: 20250605
  Transmission Date: 20250717
  Serious: Yes (Hospitalization, Other)
  Sender: ACADIA PHARMACEUTICALS
  Company Number: US-ACADIA PHARMACEUTICALS INC.-ACA-2025-PIM-006588

PATIENT
  Sex: Male

DRUGS (12)
  1. NUPLAZID [Suspect]
     Active Substance: PIMAVANSERIN TARTRATE
     Indication: Parkinson^s disease
     Dosage: 34 MILLIGRAM, QD
     Route: 048
     Dates: start: 20240201
  2. SINEMET [Concomitant]
     Active Substance: CARBIDOPA\LEVODOPA
  3. ZETIA [Concomitant]
     Active Substance: EZETIMIBE
  4. FLUTICASONE [Concomitant]
     Active Substance: FLUTICASONE
  5. MONTELUKAST [Concomitant]
     Active Substance: MONTELUKAST
  6. NOVOLOG [Concomitant]
     Active Substance: INSULIN ASPART
  7. XANAX [Concomitant]
     Active Substance: ALPRAZOLAM
  8. AMLODIPINE [Concomitant]
     Active Substance: AMLODIPINE BESYLATE
  9. MEROPENEM [Concomitant]
     Active Substance: MEROPENEM
  10. ZINC [Concomitant]
     Active Substance: ZINC
  11. VITAMIN C [Concomitant]
     Active Substance: ASCORBIC ACID
  12. A-VITEL [Concomitant]

REACTIONS (1)
  - Osteomyelitis chronic [Recovered/Resolved]
